FAERS Safety Report 12844636 (Version 2)
Quarter: 2016Q4

REPORT INFORMATION
  Report Type: Report from Study
  Country: US (occurrence: US)
  Receive Date: 20161013
  Receipt Date: 20161222
  Transmission Date: 20170207
  Serious: Yes (Death, Hospitalization, Other)
  Sender: FDA-Public Use
  Company Number: US-B.I. PHARMACEUTICALS,INC./RIDGEFIELD-2016-BI-06191BI

PATIENT
  Age: 27 Year
  Sex: Female
  Weight: 76 kg

DRUGS (13)
  1. BLINDED LINAGLIPTIN [Suspect]
     Active Substance: LINAGLIPTIN
     Indication: TYPE 2 DIABETES MELLITUS
     Route: 048
     Dates: start: 20151225, end: 20151230
  2. GABAPENTIN. [Concomitant]
     Active Substance: GABAPENTIN
     Indication: DIABETIC NEUROPATHY
     Route: 048
     Dates: start: 20150513
  3. VITAMIN D [Concomitant]
     Active Substance: CHOLECALCIFEROL
     Indication: SUPPLEMENTATION THERAPY
     Route: 065
     Dates: start: 20150409
  4. ZOFRAN [Concomitant]
     Active Substance: ONDANSETRON HYDROCHLORIDE
     Indication: NAUSEA
     Route: 065
     Dates: start: 20150911
  5. LEVEMIR [Concomitant]
     Active Substance: INSULIN DETEMIR
     Indication: TYPE 2 DIABETES MELLITUS
     Route: 058
     Dates: start: 20151010
  6. METOPROLOL. [Concomitant]
     Active Substance: METOPROLOL
     Indication: HYPERTENSION
     Route: 048
     Dates: start: 20150406
  7. HUMALOG [Concomitant]
     Active Substance: INSULIN LISPRO
     Indication: TYPE 2 DIABETES MELLITUS
     Route: 058
     Dates: start: 20150406, end: 20160208
  8. BLINDED LINAGLIPTIN [Suspect]
     Active Substance: LINAGLIPTIN
     Route: 048
     Dates: start: 20160716, end: 20160716
  9. LISINOPRIL. [Concomitant]
     Active Substance: LISINOPRIL
     Indication: CHRONIC KIDNEY DISEASE
     Route: 048
     Dates: start: 20150409
  10. FLEXERIL [Concomitant]
     Active Substance: CYCLOBENZAPRINE HYDROCHLORIDE
     Indication: MUSCLE SPASMS
     Route: 048
     Dates: start: 20150521
  11. BLINDED LINAGLIPTIN [Suspect]
     Active Substance: LINAGLIPTIN
     Route: 048
     Dates: start: 20160115, end: 20160208
  12. BLINDED LINAGLIPTIN [Suspect]
     Active Substance: LINAGLIPTIN
     Route: 048
     Dates: start: 20160616, end: 20160618
  13. BLINDED LINAGLIPTIN [Suspect]
     Active Substance: LINAGLIPTIN
     Route: 048
     Dates: start: 20160707, end: 20160713

REACTIONS (7)
  - Pyelonephritis [Recovered/Resolved]
  - Acute kidney injury [Unknown]
  - Glaucoma [Recovered/Resolved]
  - Pyelonephritis [Recovered/Resolved]
  - Haemorrhagic ovarian cyst [Recovered/Resolved with Sequelae]
  - Death [Fatal]
  - Seizure [Unknown]

NARRATIVE: CASE EVENT DATE: 20151225
